FAERS Safety Report 4410819-9 (Version None)
Quarter: 2004Q3

REPORT INFORMATION
  Report Type: 
  Country: None (occurrence: None)
  Receive Date: 20040726
  Receipt Date: 20040712
  Transmission Date: 20050211
  Serious: Yes (Death, Hospitalization, Other)
  Sender: FDA-Public Use
  Company Number: 163-20785-04070336

PATIENT
  Age: 59 Year
  Sex: Male

DRUGS (11)
  1. THALOMID [Suspect]
     Indication: MULTIPLE MYELOMA
     Dosage: ORAL
     Route: 048
     Dates: start: 20040513, end: 20040101
  2. VELCADE [Suspect]
     Indication: MULTIPLE MYELOMA
     Dates: start: 20040513, end: 20040101
  3. DEXAMETHASONE [Suspect]
     Indication: MULTIPLE MYELOMA
     Dates: start: 20040513, end: 20040101
  4. CISPLATIN [Suspect]
     Indication: MULTIPLE MYELOMA
     Dates: start: 20040513, end: 20040101
  5. ADRIAMYCIN PFS [Suspect]
     Indication: MULTIPLE MYELOMA
     Dates: start: 20040513, end: 20040101
  6. CYTOXAN [Suspect]
     Indication: MULTIPLE MYELOMA
     Dates: start: 20040513, end: 20040101
  7. ETOPOSIDE [Suspect]
     Indication: MULTIPLE MYELOMA
     Dates: start: 20040513, end: 20040101
  8. VORICONAZOLE (VORICONAZOLE) [Concomitant]
  9. ACYCLOVIR [Concomitant]
  10. TEQUIN [Concomitant]
  11. PROTONIX [Concomitant]

REACTIONS (33)
  - ASTHENIA [None]
  - BACK PAIN [None]
  - BLOOD CALCIUM DECREASED [None]
  - BLOOD GLUCOSE INCREASED [None]
  - BLOOD LACTATE DEHYDROGENASE INCREASED [None]
  - BLOOD PHOSPHORUS DECREASED [None]
  - BLOOD POTASSIUM DECREASED [None]
  - BLOOD STEM CELL HARVEST FAILURE [None]
  - CYTOMEGALOVIRUS INFECTION [None]
  - DYSPHAGIA [None]
  - GRAFT VERSUS HOST DISEASE [None]
  - HAEMATOCRIT DECREASED [None]
  - HAEMOGLOBIN DECREASED [None]
  - HERPES OESOPHAGITIS [None]
  - HIATUS HERNIA [None]
  - INFLUENZA [None]
  - MALIGNANT NEOPLASM PROGRESSION [None]
  - MARKEDLY REDUCED DIETARY INTAKE [None]
  - MASS [None]
  - MUCOSAL INFLAMMATION [None]
  - MULTIPLE MYELOMA [None]
  - MYELOMA RECURRENCE [None]
  - ODYNOPHAGIA [None]
  - OESOPHAGITIS ULCERATIVE [None]
  - ORTHOSTATIC HYPOTENSION [None]
  - OXYGEN SATURATION DECREASED [None]
  - PCO2 DECREASED [None]
  - PHARYNGOLARYNGEAL PAIN [None]
  - PLASMACYTOSIS [None]
  - PNEUMONITIS [None]
  - THROMBOCYTOPENIC PURPURA [None]
  - UPPER RESPIRATORY TRACT INFECTION [None]
  - WEIGHT DECREASED [None]
